FAERS Safety Report 21248442 (Version 1)
Quarter: 2022Q3

REPORT INFORMATION
  Report Type: Spontaneous
  Country: RU (occurrence: RU)
  Receive Date: 20220824
  Receipt Date: 20220824
  Transmission Date: 20221026
  Serious: Yes (Death, Hospitalization, Other)
  Sender: FDA-Public Use
  Company Number: RU-SLATE RUN PHARMACEUTICALS-22RU001275

PATIENT
  Age: 20 Year
  Sex: Female
  Weight: 60 kg

DRUGS (6)
  1. AZITHROMYCIN [Suspect]
     Active Substance: AZITHROMYCIN
     Indication: Infection
     Dosage: 500 MILLIGRAM, QD
     Dates: start: 20201029, end: 20201102
  2. ACETAMINOPHEN [Suspect]
     Active Substance: ACETAMINOPHEN
     Indication: Infection
     Dosage: UNK
     Dates: start: 20201029
  3. CEFTRIAXONE [Suspect]
     Active Substance: CEFTRIAXONE
     Indication: Infection
     Dosage: 2 GRAM, QD
     Dates: start: 20201029, end: 20221102
  4. AMOXICILLIN TRIHYDRATE [Suspect]
     Active Substance: AMOXICILLIN
     Indication: Infection
     Dosage: 500 MILLIGRAM, TID
     Dates: start: 20220818
  5. EVEROLIMUS [Concomitant]
     Active Substance: EVEROLIMUS
     Indication: Tuberous sclerosis complex
     Dosage: 10 MILLIGRAM, QD
     Dates: start: 2014
  6. ENCORATE CHRONO [Concomitant]
     Indication: Epilepsy
     Dosage: 500 MILLIGRAM, BID

REACTIONS (19)
  - COVID-19 pneumonia [Fatal]
  - Pneumonia necrotising [Fatal]
  - Infectious pleural effusion [Fatal]
  - Respiratory failure [Fatal]
  - Treatment failure [Unknown]
  - Cardiovascular insufficiency [Fatal]
  - Hydrothorax [Unknown]
  - Coma [Unknown]
  - Cyanosis [Unknown]
  - Depressed level of consciousness [Unknown]
  - Pneumothorax [Unknown]
  - Epilepsy [Unknown]
  - Atelectasis [Unknown]
  - Pallor [Unknown]
  - Hypoproteinaemia [Unknown]
  - Anaemia [Unknown]
  - Leukocytosis [Unknown]
  - Lymphopenia [Unknown]
  - Platelet count increased [Unknown]

NARRATIVE: CASE EVENT DATE: 20201101
